FAERS Safety Report 9863701 (Version 1)
Quarter: 2014Q1

REPORT INFORMATION
  Report Type: Spontaneous
  Country: GB (occurrence: GB)
  Receive Date: 20140203
  Receipt Date: 20140203
  Transmission Date: 20141002
  Serious: Yes (Other)
  Sender: FDA-Public Use
  Company Number: GB-WATSON-2014-01082

PATIENT
  Age: 61 Year
  Sex: Female

DRUGS (6)
  1. DILTIAZEM [Suspect]
     Indication: BLOOD PRESSURE
     Dosage: 240 MG, UNKNOWN
     Route: 048
     Dates: start: 20130531
  2. DILTIAZEM (UNKNOWN) [Interacting]
     Dosage: 120 MG, UNKNOWN
     Route: 048
  3. RIBAVIRIN [Interacting]
     Indication: HEPATITIS C
     Dosage: UNK
     Route: 048
     Dates: start: 20130601
  4. INTERFERON ALFA [Interacting]
     Indication: HEPATITIS C
     Dosage: UNK EVERY WEEK
     Route: 058
     Dates: start: 20130601
  5. TELAPREVIR [Suspect]
     Indication: HEPATITIS C
     Dosage: 750 MG, TID
     Route: 048
     Dates: start: 20130601
  6. RAMIPRIL [Concomitant]
     Indication: HYPERTENSION
     Dosage: UNK
     Route: 065

REACTIONS (7)
  - Hypertension [Unknown]
  - Drug interaction [Not Recovered/Not Resolved]
  - Anxiety [Unknown]
  - Irritability [Not Recovered/Not Resolved]
  - Influenza like illness [Not Recovered/Not Resolved]
  - Proctalgia [Recovering/Resolving]
  - Nausea [Not Recovered/Not Resolved]
